FAERS Safety Report 6159076-6 (Version None)
Quarter: 2009Q2

REPORT INFORMATION
  Report Type: 
  Country: None (occurrence: None)
  Receive Date: 20090415
  Receipt Date: 20090405
  Transmission Date: 20091009
  Serious: Yes (Other)
  Sender: FDA-Public Use
  Company Number: CIO08020591

PATIENT
  Age: 78 Year
  Sex: Female
  Weight: 73.9 kg

DRUGS (9)
  1. NYQUIL COLD/FLU, ALCOHOL 10% PSEUDOEPHEDRINE FREE, CH [Suspect]
     Indication: OROPHARYNGEAL PAIN
     Dosage: 30 ML, 1 DAY FOR 1 DAY, ORAL
     Route: 048
     Dates: start: 20081210, end: 20081210
  2. NYQUIL COLD/FLU, ALCOHOL 10% PSEUDOEPHEDRINE FREE, CH [Suspect]
     Indication: SINUS CONGESTION
     Dosage: 30 ML, 1 DAY FOR 1 DAY, ORAL
     Route: 048
     Dates: start: 20081210, end: 20081210
  3. LEVOTHYROXINE SODIUM [Concomitant]
  4. GLIMEPIRIDE [Concomitant]
  5. NEXIUM [Concomitant]
  6. VITAMIN B12 /00056201/ (CYANOCOBALAMIN) [Concomitant]
  7. AMBIEN [Concomitant]
  8. FERROUS SULFATE TAB [Concomitant]
  9. METOCLOPRAMIDE [Concomitant]

REACTIONS (15)
  - BLOOD PRESSURE INCREASED [None]
  - CHILLS [None]
  - DYSPHAGIA [None]
  - ERYTHEMA [None]
  - EXPIRED DRUG ADMINISTERED [None]
  - EYE SWELLING [None]
  - FEELING ABNORMAL [None]
  - HYPERSENSITIVITY [None]
  - OROPHARYNGEAL PAIN [None]
  - PHARYNGEAL OEDEMA [None]
  - PRURITUS [None]
  - RASH GENERALISED [None]
  - SWELLING FACE [None]
  - THROAT TIGHTNESS [None]
  - TONGUE OEDEMA [None]
